FAERS Safety Report 21796205 (Version 3)
Quarter: 2023Q1

REPORT INFORMATION
  Report Type: Spontaneous
  Country: FR (occurrence: FR)
  Receive Date: 20221229
  Receipt Date: 20230111
  Transmission Date: 20230417
  Serious: Yes (Hospitalization)
  Sender: FDA-Public Use
  Company Number: None

PATIENT
  Age: 71 Year
  Sex: Male

DRUGS (2)
  1. PAXLOVID [Suspect]
     Active Substance: NIRMATRELVIR\RITONAVIR
     Indication: COVID-19 treatment
     Dosage: [PF-07321332 150MG]/[RITONAVIR 100 MG]; 2X/DAY;(1 TABLET OF RITONAVIR + 1 TABLET OF NIRMATRELVIR IN
     Route: 048
     Dates: start: 20221125, end: 20221130
  2. TACROLIMUS [Suspect]
     Active Substance: TACROLIMUS
     Indication: Renal transplant
     Dosage: 4 MG, 1X/DAY
     Route: 048
     Dates: end: 20221201

REACTIONS (5)
  - Failure to suspend medication [Recovered/Resolved]
  - Product prescribing issue [Recovered/Resolved]
  - Immunosuppressant drug level increased [Recovered/Resolved]
  - Renal failure [Recovered/Resolved]
  - Diarrhoea [Recovered/Resolved]

NARRATIVE: CASE EVENT DATE: 20221125
